FAERS Safety Report 8412440-4 (Version None)
Quarter: 2012Q2

REPORT INFORMATION
  Report Type: 
  Country: None (occurrence: None)
  Receive Date: 20120531
  Receipt Date: 20120531
  Transmission Date: 20120825
  Serious: Yes (Hospitalization)
  Sender: FDA-Public Use
  Company Number: None

PATIENT
  Sex: Male
  Weight: 60 kg

DRUGS (4)
  1. PREDNISONE TAB [Suspect]
     Dosage: 150 MG
     Dates: end: 20120518
  2. DAUNORUBICIN HCL [Suspect]
     Dosage: 30 MG
     Dates: end: 20120522
  3. CYTARABINE [Suspect]
     Dosage: 70 MG
     Dates: end: 20120510
  4. VINCRISTINE SULFATE [Suspect]
     Dosage: 2.5 MG
     Dates: end: 20120522

REACTIONS (6)
  - ORAL HERPES [None]
  - LIVER DISORDER [None]
  - SUBARACHNOID HAEMORRHAGE [None]
  - FUNGAL INFECTION [None]
  - LUNG DISORDER [None]
  - MENTAL STATUS CHANGES [None]
